FAERS Safety Report 8924337 (Version 1)
Quarter: 2012Q4

REPORT INFORMATION
  Report Type: 
  Country: LT (occurrence: LT)
  Receive Date: 20121126
  Receipt Date: 20121126
  Transmission Date: 20130627
  Serious: Yes (Other)
  Sender: FDA-Public Use
  Company Number: LT-GLAXOSMITHKLINE-B0846594A

PATIENT
  Age: 35 Year
  Sex: Female

DRUGS (3)
  1. TROBALT [Suspect]
     Indication: PARTIAL SEIZURES
     Dosage: 900MG per day
     Dates: start: 201205
  2. LAMICTAL [Concomitant]
     Indication: EPILEPSY
     Dosage: 400MG per day
     Route: 065
  3. DEPAKINE [Concomitant]
     Indication: EPILEPSY
     Dosage: 1250MG per day
     Route: 065

REACTIONS (1)
  - Convulsion [Recovered/Resolved]
